FAERS Safety Report 9188800 (Version 1)
Quarter: 2013Q1

REPORT INFORMATION
  Report Type: Report from Study
  Country: KR (occurrence: KR)
  Receive Date: 20130326
  Receipt Date: 20130326
  Transmission Date: 20140127
  Serious: Yes (Other)
  Sender: FDA-Public Use
  Company Number: KR-ROCHE-1205502

PATIENT
  Sex: Male

DRUGS (3)
  1. LUCENTIS [Suspect]
     Indication: AGE-RELATED MACULAR DEGENERATION
     Route: 050
     Dates: start: 2008
  2. LUCENTIS [Suspect]
     Route: 050
     Dates: start: 201301
  3. LUCENTIS [Suspect]
     Route: 050
     Dates: start: 201302

REACTIONS (1)
  - Age-related macular degeneration [Recovering/Resolving]
